APPROVED DRUG PRODUCT: TALWIN NX
Active Ingredient: NALOXONE HYDROCHLORIDE; PENTAZOCINE HYDROCHLORIDE
Strength: EQ 0.5MG BASE;EQ 50MG BASE **Federal Register determination that product was not discontinued or withdrawn for safety or effectiveness reasons**
Dosage Form/Route: TABLET;ORAL
Application: N018733 | Product #001
Applicant: SANOFI AVENTIS US LLC
Approved: Dec 16, 1982 | RLD: No | RS: No | Type: DISCN